FAERS Safety Report 13281900 (Version 1)
Quarter: 2017Q1

REPORT INFORMATION
  Report Type: Spontaneous
  Country: US (occurrence: US)
  Receive Date: 20170301
  Receipt Date: 20170301
  Transmission Date: 20170428
  Serious: No
  Sender: FDA-Public Use
  Company Number: US-FERRINGPH-2016FE01153

PATIENT
  Age: 13 Year
  Sex: Male
  Weight: 73 kg

DRUGS (1)
  1. DESMOPRESSIN [Suspect]
     Active Substance: DESMOPRESSIN
     Indication: ENURESIS
     Dosage: 1 SPRAY IN EACH NOSTRIL  AT NIGHT DAILY
     Route: 045
     Dates: start: 201402

REACTIONS (1)
  - Epistaxis [Unknown]
